FAERS Safety Report 8724042 (Version 3)
Quarter: 2013Q2

REPORT INFORMATION
  Report Type: Report from Study
  Country: FR (occurrence: FR)
  Receive Date: 20120815
  Receipt Date: 20130402
  Transmission Date: 20140414
  Serious: Yes (Hospitalization)
  Sender: FDA-Public Use
  Company Number: FR-MPIJNJ-2012-05498

PATIENT
  Sex: 0

DRUGS (9)
  1. VELCADE [Suspect]
     Indication: PLASMA CELL MYELOMA
     Dosage: 2899 UNK, UNK
     Route: 042
     Dates: start: 20120608
  2. CYCLOPHOSPHAMIDE [Suspect]
     Indication: PLASMA CELL MYELOMA
     Dosage: 1672 MG, UNK
     Route: 042
     Dates: start: 20120608
  3. DEXAMETHASONE [Suspect]
     Indication: PLASMA CELL MYELOMA
     Dosage: 20 MG, UNK
     Route: 048
     Dates: start: 20120608
  4. PHENOXYMETHYLPENICILLIN [Concomitant]
     Indication: PROPHYLAXIS
     Dosage: 200000 UNITS, UNK
     Route: 048
     Dates: start: 20120608
  5. ATOVAQUONE [Concomitant]
     Indication: PROPHYLAXIS
     Dosage: 15000 MG, UNK
     Route: 048
     Dates: start: 20120608
  6. VALACICLOVIR [Concomitant]
     Indication: PROPHYLAXIS
     Dosage: 1000 MG, UNK
     Route: 048
     Dates: start: 20120608
  7. ESOMEPRAZOLE [Concomitant]
     Indication: PROPHYLAXIS
     Dosage: 20 MG, UNK
     Route: 048
     Dates: start: 20120608
  8. ALLOPURINOL [Concomitant]
     Indication: PROPHYLAXIS
     Dosage: 300 MG, UNK
     Route: 048
     Dates: start: 20120608
  9. SODIUM BICARBONATE [Concomitant]
     Indication: ACIDOSIS
     Dosage: 1500 MG, UNK
     Route: 048
     Dates: start: 20120608

REACTIONS (4)
  - Clostridium colitis [Recovered/Resolved]
  - Dehydration [None]
  - Hypokalaemia [None]
  - Plasma cell myeloma [None]
